FAERS Safety Report 4776266-5 (Version None)
Quarter: 2005Q3

REPORT INFORMATION
  Report Type: 
  Country: None (occurrence: None)
  Receive Date: 20050922
  Receipt Date: 20050912
  Transmission Date: 20060218
  Serious: Yes (Hospitalization)
  Sender: FDA-Public Use
  Company Number: GB-JNJFOC-20050900020

PATIENT
  Sex: Male

DRUGS (4)
  1. DURAGESIC-50 [Suspect]
     Route: 062
  2. DURAGESIC-50 [Suspect]
     Route: 062
  3. DURAGESIC-50 [Suspect]
     Indication: PAIN
     Route: 062
  4. BISACODYL [Concomitant]
     Dosage: 2 NOCTE.
     Route: 065

REACTIONS (2)
  - MONOPLEGIA [None]
  - PHARMACEUTICAL PRODUCT COMPLAINT [None]
